FAERS Safety Report 10211514 (Version 1)
Quarter: 2014Q2

REPORT INFORMATION
  Report Type: Spontaneous
  Country: IN (occurrence: IN)
  Receive Date: 20140602
  Receipt Date: 20140602
  Transmission Date: 20141212
  Serious: Yes (Other)
  Sender: FDA-Public Use
  Company Number: IN-ACTAVIS-2014-11807

PATIENT
  Age: 60 Year
  Sex: Female

DRUGS (1)
  1. PHENYTOIN (AMALLC) [Suspect]
     Indication: CONVULSION
     Dosage: 100 MG, TID
     Route: 048

REACTIONS (3)
  - Dyskinesia [Recovered/Resolved]
  - Anticonvulsant drug level above therapeutic [Recovered/Resolved]
  - Toxicity to various agents [Recovered/Resolved]
